FAERS Safety Report 6080443-3 (Version None)
Quarter: 2009Q1

REPORT INFORMATION
  Report Type: 
  Country: None (occurrence: None)
  Receive Date: 20090217
  Receipt Date: 20090210
  Transmission Date: 20090719
  Serious: Yes (Other)
  Sender: FDA-Public Use
  Company Number: PHHY2009FR05212

PATIENT
  Age: 75 Year
  Sex: Female

DRUGS (2)
  1. ACLASTA [Suspect]
     Dosage: 5 MG, UNK
     Route: 042
  2. NOVONORM [Concomitant]
     Indication: DIABETES MELLITUS

REACTIONS (3)
  - DIABETES MELLITUS INADEQUATE CONTROL [None]
  - FATIGUE [None]
  - INFLUENZA [None]
